FAERS Safety Report 10746226 (Version 2)
Quarter: 2015Q4

REPORT INFORMATION
  Report Type: Spontaneous
  Country: US (occurrence: US)
  Receive Date: 20150128
  Receipt Date: 20151026
  Transmission Date: 20160304
  Serious: Yes (Death, Other)
  Sender: FDA-Public Use
  Company Number: US-ASTRAZENECA-2014SE58866

PATIENT
  Age: 22865 Day
  Sex: Male
  Weight: 141.1 kg

DRUGS (13)
  1. GLUCOVANCE [Concomitant]
     Active Substance: GLYBURIDE\METFORMIN HYDROCHLORIDE
     Dosage: 125 MG/500 MG
  2. BYETTA [Suspect]
     Active Substance: EXENATIDE
     Indication: TYPE 2 DIABETES MELLITUS
     Dosage: UNK
     Route: 065
     Dates: start: 2010
  3. LISINOPRIL. [Concomitant]
     Active Substance: LISINOPRIL
     Route: 048
     Dates: start: 20110418
  4. AVALIDE [Concomitant]
     Active Substance: HYDROCHLOROTHIAZIDE\IRBESARTAN
     Dosage: 150MG/12.5MG
  5. ACTOS [Concomitant]
     Active Substance: PIOGLITAZONE HYDROCHLORIDE
     Route: 048
     Dates: start: 20110418
  6. GLUCOPHAGE [Concomitant]
     Active Substance: METFORMIN HYDROCHLORIDE
  7. BYETTA [Suspect]
     Active Substance: EXENATIDE
     Indication: TYPE 2 DIABETES MELLITUS
     Dosage: 10 MCG/0.04, TWO TIMES A DAY
     Route: 058
     Dates: start: 20100412
  8. GLYBURIDE. [Concomitant]
     Active Substance: GLYBURIDE
     Route: 048
     Dates: start: 20110418
  9. JANUMET [Suspect]
     Active Substance: METFORMIN HYDROCHLORIDE\SITAGLIPTIN PHOSPHATE
     Indication: TYPE 2 DIABETES MELLITUS
     Dosage: UNK
     Route: 065
     Dates: start: 2009
  10. COUMADIN [Concomitant]
     Active Substance: WARFARIN SODIUM
  11. JANUVIA [Suspect]
     Active Substance: SITAGLIPTIN PHOSPHATE
     Indication: TYPE 2 DIABETES MELLITUS
     Dosage: UNK
     Route: 065
     Dates: start: 2008
  12. AVAPRO [Concomitant]
     Active Substance: IRBESARTAN
     Dosage: 300MG/12.5MG
  13. CEFZIL [Concomitant]
     Active Substance: CEFPROZIL

REACTIONS (8)
  - Pancreatic carcinoma [Fatal]
  - Sepsis [Fatal]
  - Metastases to liver [Unknown]
  - Metastases to peritoneum [Unknown]
  - Jaundice cholestatic [Unknown]
  - Bile duct obstruction [Unknown]
  - Duodenal obstruction [Unknown]
  - Ascites [Unknown]

NARRATIVE: CASE EVENT DATE: 20110528
